FAERS Safety Report 7842967-5 (Version None)
Quarter: 2011Q4

REPORT INFORMATION
  Report Type: 
  Country: None (occurrence: None)
  Receive Date: 20111024
  Receipt Date: 20111024
  Transmission Date: 20120403
  Serious: Yes (Other)
  Sender: FDA-Public Use
  Company Number: None

PATIENT
  Age: 72 Year
  Sex: Male
  Weight: 77.1115 kg

DRUGS (2)
  1. SULFAMETHOXAZOLE AND TRIMETHOPRIM [Suspect]
     Indication: FEELING ABNORMAL
     Dosage: 10 STOPPED AFTER (4) 2/DAY MOUTH 8/19 - 8/20
     Route: 048
  2. LEVOFLOXACIN [Suspect]
     Indication: BIOPSY PROSTATE
     Dosage: 4 1/DAY MOUTH
     Route: 048
     Dates: start: 20110815, end: 20110818

REACTIONS (3)
  - PAIN IN EXTREMITY [None]
  - ABASIA [None]
  - NECK PAIN [None]
